FAERS Safety Report 23241252 (Version 6)
Quarter: 2024Q2

REPORT INFORMATION
  Report Type: Spontaneous
  Country: US (occurrence: US)
  Receive Date: 20231129
  Receipt Date: 20240529
  Transmission Date: 20240717
  Serious: Yes (Other)
  Sender: FDA-Public Use
  Company Number: US-PFIZER INC-202300400394

PATIENT
  Age: 90 Year
  Sex: Female
  Weight: 59.87 kg

DRUGS (8)
  1. PREMPRO [Suspect]
     Active Substance: ESTROGENS, CONJUGATED\MEDROXYPROGESTERONE ACETATE
     Indication: Vaginal disorder
     Dosage: UNK, 1X/DAY (ONCE A DAY IN THE EVENING 0.3 MILLIGRAMS AND 1.5 MILLIGRAMS.)
  2. PREMPRO [Suspect]
     Active Substance: ESTROGENS, CONJUGATED\MEDROXYPROGESTERONE ACETATE
     Dosage: 0.3MG/1.5MG EVERY DAY BY MOUTH
     Route: 048
  3. METOPROLOL SUCCINATE [Concomitant]
     Active Substance: METOPROLOL SUCCINATE
     Dosage: UNK
  4. ISOSORBIDE MONONITRATE [Concomitant]
     Active Substance: ISOSORBIDE MONONITRATE
     Dosage: UNK
  5. THALITONE [Concomitant]
     Active Substance: CHLORTHALIDONE
     Dosage: UNK
  6. AMLODIPINE [Concomitant]
     Active Substance: AMLODIPINE BESYLATE
     Dosage: UNK
  7. FENOFIBRATE [Concomitant]
     Active Substance: FENOFIBRATE
     Dosage: UNK
  8. LEVOTHYROXINE [Concomitant]
     Active Substance: LEVOTHYROXINE\LEVOTHYROXINE SODIUM
     Dosage: UNK

REACTIONS (3)
  - Mastoiditis [Unknown]
  - Hypoacusis [Not Recovered/Not Resolved]
  - Breast swelling [Unknown]

NARRATIVE: CASE EVENT DATE: 20220326
